FAERS Safety Report 7952194-9 (Version None)
Quarter: 2011Q4

REPORT INFORMATION
  Report Type: 
  Country: None (occurrence: None)
  Receive Date: 20111201
  Receipt Date: 20111121
  Transmission Date: 20120403
  Serious: Yes (Death, Hospitalization)
  Sender: FDA-Public Use
  Company Number: JP-UCBSA-038633

PATIENT
  Sex: Female

DRUGS (3)
  1. ZONISAMIDE [Concomitant]
     Route: 048
  2. PHENOBARBITAL TAB [Concomitant]
  3. KEPPRA [Suspect]
     Indication: EPILEPSY
     Route: 048

REACTIONS (4)
  - BRAIN NEOPLASM [None]
  - BRAIN OEDEMA [None]
  - GRAND MAL CONVULSION [None]
  - STATUS EPILEPTICUS [None]
